FAERS Safety Report 12642751 (Version 3)
Quarter: 2016Q4

REPORT INFORMATION
  Report Type: Spontaneous
  Country: SE (occurrence: SE)
  Receive Date: 20160811
  Receipt Date: 20161121
  Transmission Date: 20170207
  Serious: Yes (Other)
  Sender: FDA-Public Use
  Company Number: SE-AMGEN-SWESP2016103470

PATIENT
  Age: 58 Year
  Sex: Female

DRUGS (54)
  1. OVESTERIN [Concomitant]
     Active Substance: ESTRIOL
  2. FENTANYL. [Concomitant]
     Active Substance: FENTANYL
     Dosage: UNK
  3. RINEXIN [Concomitant]
     Active Substance: PHENYLPROPANOLAMINE
     Dosage: UNK
  4. FUROSEMIDE. [Concomitant]
     Active Substance: FUROSEMIDE
     Dosage: UNK, AS NECESSARY
  5. PARAFLEX [Concomitant]
     Active Substance: CHLORZOXAZONE
  6. METFORMIN [Concomitant]
     Active Substance: METFORMIN HYDROCHLORIDE
     Dosage: UNK
  7. BISOPROLOL [Concomitant]
     Active Substance: BISOPROLOL
  8. CRESTOR [Concomitant]
     Active Substance: ROSUVASTATIN CALCIUM
  9. OXASCAND [Concomitant]
     Active Substance: OXAZEPAM
     Dosage: UNK, AS NECESSARY
  10. BRICANYL [Concomitant]
     Active Substance: TERBUTALINE SULFATE
  11. OPATANOL [Concomitant]
     Active Substance: OLOPATADINE
  12. METFORMIN [Concomitant]
     Active Substance: METFORMIN HYDROCHLORIDE
  13. DIVISUN [Concomitant]
  14. CRESTOR [Concomitant]
     Active Substance: ROSUVASTATIN CALCIUM
     Dosage: UNK
  15. OVESTERIN [Concomitant]
     Active Substance: ESTRIOL
     Dosage: UNK
  16. PREDNISOLONE. [Concomitant]
     Active Substance: PREDNISOLONE
     Dosage: UNK
  17. MIRTAZAPINE. [Concomitant]
     Active Substance: MIRTAZAPINE
     Dosage: UNK
  18. ARICLAIM [Concomitant]
     Active Substance: DULOXETINE HYDROCHLORIDE
  19. ESOMEPRAZOLE [Concomitant]
     Active Substance: ESOMEPRAZOLE
     Dosage: UNK
  20. ESOMEPRAZOLE [Concomitant]
     Active Substance: ESOMEPRAZOLE
  21. BISOPROLOL [Concomitant]
     Active Substance: BISOPROLOL
     Dosage: UNK
  22. FENTANYL. [Concomitant]
     Active Substance: FENTANYL
  23. MIRTAZAPINE. [Concomitant]
     Active Substance: MIRTAZAPINE
  24. OXYNORM [Concomitant]
     Active Substance: OXYCODONE HYDROCHLORIDE
     Dosage: UNK, AS NECESSARY
  25. OXYNORM [Concomitant]
     Active Substance: OXYCODONE HYDROCHLORIDE
  26. BRICANYL [Concomitant]
     Active Substance: TERBUTALINE SULFATE
     Dosage: UNK, AS NECESSARY
  27. BEHEPAN [Concomitant]
     Active Substance: HYDROXOCOBALAMIN
  28. LOSARTAN. [Concomitant]
     Active Substance: LOSARTAN
     Dosage: UNK
  29. PRIMPERAN [Concomitant]
     Active Substance: METOCLOPRAMIDE HYDROCHLORIDE
     Indication: OSTEOPOROSIS
     Dosage: UNK, AS NECESSARY
  30. PARAFLEX [Concomitant]
     Active Substance: CHLORZOXAZONE
     Dosage: UNK UNK, AS NECESSARY
  31. MINIFOM [Concomitant]
  32. JANUVIA [Concomitant]
     Active Substance: SITAGLIPTIN PHOSPHATE
  33. LOSARTAN. [Concomitant]
     Active Substance: LOSARTAN
  34. PREDNISOLONE. [Concomitant]
     Active Substance: PREDNISOLONE
  35. SYMBICORT [Concomitant]
     Active Substance: BUDESONIDE\FORMOTEROL FUMARATE DIHYDRATE
     Dosage: UNK
  36. AERIUS [Concomitant]
     Active Substance: DESLORATADINE
  37. PRIMPERAN [Concomitant]
     Active Substance: METOCLOPRAMIDE HYDROCHLORIDE
  38. FUROSEMIDE. [Concomitant]
     Active Substance: FUROSEMIDE
  39. OXASCAND [Concomitant]
     Active Substance: OXAZEPAM
  40. OPATANOL [Concomitant]
     Active Substance: OLOPATADINE
     Dosage: UNK, AS NECESSARY
  41. PROLIA [Suspect]
     Active Substance: DENOSUMAB
     Indication: OSTEOPOROSIS
     Dosage: UNK UNK, Q6MO
     Route: 058
     Dates: start: 20130426
  42. MINIFOM [Concomitant]
     Dosage: UNK
  43. JANUVIA [Concomitant]
     Active Substance: SITAGLIPTIN PHOSPHATE
     Dosage: UNK
  44. DIVISUN [Concomitant]
     Dosage: UNK
  45. BEHEPAN [Concomitant]
     Active Substance: HYDROXOCOBALAMIN
     Dosage: UNK
  46. FOLACIN [Concomitant]
     Active Substance: FOLIC ACID
     Dosage: UNK
  47. FOLACIN [Concomitant]
     Active Substance: FOLIC ACID
  48. AERIUS [Concomitant]
     Active Substance: DESLORATADINE
     Dosage: UNK
  49. CILAXORAL [Concomitant]
     Dosage: UNK, AS NECESSARY
  50. ARICLAIM [Concomitant]
     Active Substance: DULOXETINE HYDROCHLORIDE
     Dosage: UNK
  51. RINEXIN [Concomitant]
     Active Substance: PHENYLPROPANOLAMINE
  52. CILAXORAL [Concomitant]
  53. MOVICOL [Concomitant]
     Active Substance: POLYETHYLENE GLYCOL 3350\POTASSIUM CHLORIDE\SODIUM BICARBONATE\SODIUM CHLORIDE
     Dosage: UNK UNK, AS NECESSARY
  54. MOVICOL [Concomitant]
     Active Substance: POLYETHYLENE GLYCOL 3350\POTASSIUM CHLORIDE\SODIUM BICARBONATE\SODIUM CHLORIDE

REACTIONS (1)
  - Osteonecrosis of jaw [Not Recovered/Not Resolved]

NARRATIVE: CASE EVENT DATE: 201410
